FAERS Safety Report 9570094 (Version 1)
Quarter: 2013Q3

REPORT INFORMATION
  Report Type: Spontaneous
  Country: US (occurrence: US)
  Receive Date: 20130930
  Receipt Date: 20130930
  Transmission Date: 20140515
  Serious: No
  Sender: FDA-Public Use
  Company Number: US-AMGEN-USASP2013065107

PATIENT
  Age: 57 Year
  Sex: Male
  Weight: 126.98 kg

DRUGS (9)
  1. ENBREL [Suspect]
     Indication: PRODUCT USED FOR UNKNOWN INDICATION
     Dosage: 25 MG, 2 TIMES/WK
     Route: 058
  2. METHOTREXATE [Concomitant]
     Dosage: 2.5 MG, UNK
  3. PREDNISONE [Concomitant]
     Dosage: 1 MG, UNK
  4. AMLOD [Concomitant]
     Dosage: 10-20 MG
  5. HYDROXYCHLOROQUINE [Concomitant]
     Dosage: 200 MG, UNK
  6. FOLIC ACID [Concomitant]
     Dosage: 1 MG, UNK
  7. MULTIVITAMINS, PLAIN [Concomitant]
     Dosage: UNK
  8. SULFASALAZIN [Concomitant]
     Dosage: 500 MG, UNK
  9. ALEVE [Concomitant]
     Dosage: 220 MG, UNK

REACTIONS (2)
  - Hyperhidrosis [Unknown]
  - Weight increased [Unknown]
